FAERS Safety Report 9002961 (Version 1)
Quarter: 2013Q1

REPORT INFORMATION
  Report Type: Spontaneous
  Country: CN (occurrence: CN)
  Receive Date: 20130108
  Receipt Date: 20130108
  Transmission Date: 20140127
  Serious: Yes (Other)
  Sender: FDA-Public Use
  Company Number: CN-PFIZER INC-2013004291

PATIENT
  Age: 67 Year
  Sex: Male
  Weight: 60 kg

DRUGS (2)
  1. MS CONTIN [Suspect]
     Indication: CORONARY ARTERY DISEASE
     Dosage: 30 MG, DAILY
     Route: 048
     Dates: start: 20090416, end: 20090417
  2. NOVOLIN R [Concomitant]
     Dosage: UNK

REACTIONS (5)
  - Hypoglycaemia [Recovering/Resolving]
  - Circulatory collapse [Recovering/Resolving]
  - Hyperhidrosis [Recovering/Resolving]
  - Palpitations [Recovering/Resolving]
  - Dizziness [Recovering/Resolving]
